FAERS Safety Report 8286973-8 (Version None)
Quarter: 2012Q2

REPORT INFORMATION
  Report Type: 
  Country: None (occurrence: None)
  Receive Date: 20120416
  Receipt Date: 20120409
  Transmission Date: 20120825
  Serious: Yes (Other)
  Sender: FDA-Public Use
  Company Number: IE-PFIZER INC-2012089161

PATIENT
  Age: 37 Year
  Sex: Male

DRUGS (2)
  1. HALOPERIDOL [Suspect]
     Dosage: 7.5 MG,  TWICE DAILY
  2. CARBAMAZEPINE [Concomitant]
     Indication: EPILEPSY
     Dosage: 600 MG, TWICE DAILY

REACTIONS (1)
  - OBSESSIVE-COMPULSIVE DISORDER [None]
